FAERS Safety Report 16286001 (Version 2)
Quarter: 2020Q2

REPORT INFORMATION
  Report Type: Spontaneous
  Country: US (occurrence: US)
  Receive Date: 20190508
  Receipt Date: 20200409
  Transmission Date: 20200713
  Serious: No
  Sender: FDA-Public Use
  Company Number: US-PFIZER INC-2019189776

PATIENT
  Age: 65 Year
  Sex: Female

DRUGS (1)
  1. LYRICA [Suspect]
     Active Substance: PREGABALIN
     Dosage: 75 MG, 2X/DAY(1 PO AT LUNCH, 1 PO AT BEDTIME)
     Route: 048

REACTIONS (3)
  - Contraindicated product prescribed [Unknown]
  - Depression [Unknown]
  - Drug hypersensitivity [Unknown]
